FAERS Safety Report 25979282 (Version 1)
Quarter: 2025Q4

REPORT INFORMATION
  Report Type: Spontaneous
  Country: CN (occurrence: CN)
  Receive Date: 20251030
  Receipt Date: 20251030
  Transmission Date: 20260118
  Serious: Yes (Other)
  Sender: MERCK SHARP & DOHME LLC
  Company Number: CN-009507513-2342751

PATIENT
  Age: 91 Year
  Sex: Male
  Weight: 74 kg

DRUGS (1)
  1. INVANZ [Suspect]
     Active Substance: ERTAPENEM SODIUM
     Indication: Pancreatitis acute
     Route: 041
     Dates: start: 20251009, end: 20251014

REACTIONS (9)
  - Generalised tonic-clonic seizure [Not Recovered/Not Resolved]
  - Cyanosis [Unknown]
  - Heart rate abnormal [Unknown]
  - Heart rate decreased [Recovered/Resolved]
  - Oxygen saturation abnormal [Unknown]
  - Blood pressure abnormal [Unknown]
  - Neurone-specific enolase increased [Unknown]
  - Pancreatitis acute [Unknown]
  - Chronic kidney disease [Unknown]

NARRATIVE: CASE EVENT DATE: 20251001
